FAERS Safety Report 16988583 (Version 1)
Quarter: 2019Q4

REPORT INFORMATION
  Report Type: Spontaneous
  Country: US (occurrence: US)
  Receive Date: 20191104
  Receipt Date: 20191104
  Transmission Date: 20200122
  Serious: No
  Sender: FDA-Public Use
  Company Number: US-APOTEX-2018AP025365

PATIENT
  Age: 59 Year
  Sex: Female

DRUGS (2)
  1. FLUTICASONE. [Suspect]
     Active Substance: FLUTICASONE
     Indication: EAR DISORDER
     Dosage: 1 SPRAY EACH NOSTRILS/DAY (INTRANASAL)
     Route: 050
     Dates: start: 20181112
  2. FLUTICASONE. [Suspect]
     Active Substance: FLUTICASONE
     Dosage: INTRANASAL
     Route: 050
     Dates: start: 20181119

REACTIONS (4)
  - Epistaxis [Recovered/Resolved]
  - Rhinorrhoea [Unknown]
  - Product odour abnormal [Unknown]
  - Nasal discomfort [Recovered/Resolved]

NARRATIVE: CASE EVENT DATE: 201811
